FAERS Safety Report 24202836 (Version 1)
Quarter: 2024Q3

REPORT INFORMATION
  Report Type: Other
  Country: US (occurrence: US)
  Receive Date: 20240813
  Receipt Date: 20240813
  Transmission Date: 20241017
  Serious: No
  Sender: TRAVERE THERAPEUTICS
  Company Number: US-TRAVERE-2024TVT00707

PATIENT
  Sex: Male

DRUGS (15)
  1. FILSPARI [Suspect]
     Active Substance: SPARSENTAN
     Indication: IgA nephropathy
     Route: 048
     Dates: start: 20240621
  2. FILSPARI [Suspect]
     Active Substance: SPARSENTAN
     Route: 048
  3. LOSARTAN POTASSIUM [Concomitant]
     Active Substance: LOSARTAN POTASSIUM
  4. MYCOPHENOLIC ACID [Concomitant]
     Active Substance: MYCOPHENOLIC ACID
  5. PNV 29-1 [Concomitant]
  6. LACOSAMIDE [Concomitant]
     Active Substance: LACOSAMIDE
  7. LOKELMA [Concomitant]
     Active Substance: SODIUM ZIRCONIUM CYCLOSILICATE
  8. ACETAMINOPHEN [Concomitant]
     Active Substance: ACETAMINOPHEN
  9. INSULIN ASPART [Concomitant]
     Active Substance: INSULIN ASPART
  10. INSULIN GLARGINE-YFGN [Concomitant]
     Active Substance: INSULIN GLARGINE-YFGN
  11. CARVEDILOL [Concomitant]
     Active Substance: CARVEDILOL
  12. PREDNISONE [Concomitant]
     Active Substance: PREDNISONE
  13. FUROSEMIDE [Concomitant]
     Active Substance: FUROSEMIDE
  14. ATORVASTATIN CALCIUM [Concomitant]
     Active Substance: ATORVASTATIN CALCIUM
  15. TACROLIMUS [Concomitant]
     Active Substance: TACROLIMUS

REACTIONS (4)
  - Swelling [Unknown]
  - Peripheral swelling [Unknown]
  - Arteriovenous fistula thrombosis [Unknown]
  - Contraindicated product administered [Unknown]
